FAERS Safety Report 6231023-8 (Version None)
Quarter: 2009Q2

REPORT INFORMATION
  Report Type: 
  Country: None (occurrence: None)
  Receive Date: 20090616
  Receipt Date: 20090612
  Transmission Date: 20091009
  Serious: Yes (Disabling)
  Sender: FDA-Public Use
  Company Number: IT-PFIZER INC-2009205974

PATIENT
  Age: 77 Year

DRUGS (3)
  1. MEDROL [Suspect]
     Indication: ASTHMA
     Dosage: 16 MG, 1X/DAY
     Route: 048
     Dates: start: 20090410, end: 20090417
  2. TAVANIC [Suspect]
     Indication: ASTHMA
     Dosage: 500 MG, 1X/DAY
     Route: 048
     Dates: start: 20090410, end: 20090417
  3. FOSTER 100/6 [Concomitant]
     Indication: ASTHMA
     Dosage: 100 MCG/6 MCG

REACTIONS (2)
  - TENDON INJURY [None]
  - TENDON PAIN [None]
